FAERS Safety Report 8536162-4 (Version None)
Quarter: 2012Q3

REPORT INFORMATION
  Report Type: 
  Country: None (occurrence: None)
  Receive Date: 20120725
  Receipt Date: 20120711
  Transmission Date: 20120928
  Serious: Yes (Death, Hospitalization, Other)
  Sender: FDA-Public Use
  Company Number: MX-ELI_LILLY_AND_COMPANY-MX201207001339

PATIENT
  Age: 81 Year
  Sex: Male

DRUGS (4)
  1. ANALGESICS [Concomitant]
  2. ANTIBIOTICS [Concomitant]
  3. MIDAZOLAM [Concomitant]
  4. ZYPREXA [Suspect]
     Indication: AGITATION
     Dosage: 5 MG, EACH EVENING
     Route: 030

REACTIONS (3)
  - CARDIO-RESPIRATORY ARREST [None]
  - HYPERTENSION [None]
  - PNEUMONIA [None]
